FAERS Safety Report 8433939-0 (Version None)
Quarter: 2012Q2

REPORT INFORMATION
  Report Type: 
  Country: None (occurrence: None)
  Receive Date: 20120323
  Receipt Date: 20110718
  Transmission Date: 20120825
  Serious: Yes (Hospitalization)
  Sender: FDA-Public Use
  Company Number: 163-21880-11072029

PATIENT
  Age: 63 Year
  Sex: Male

DRUGS (13)
  1. BENICAR [Concomitant]
  2. COUMADIN [Concomitant]
  3. DEXAMETHASONE [Concomitant]
  4. NEXIUM [Concomitant]
  5. POTASSIUM CHLORIDE [Concomitant]
  6. FEXOFENADINE HCL [Concomitant]
  7. ENALAPRIL MALEATE [Concomitant]
  8. METFFORMIN HYDROCHLORIDE [Concomitant]
  9. METOCLOPRAMIDE [Concomitant]
  10. LENALIDOMIDE [Suspect]
     Indication: MULTIPLE MYELOMA
     Dosage: 25 MG, X21 DAYS, PO
     Route: 048
     Dates: start: 20080107
  11. FLOMAX [Concomitant]
  12. FLUCONAZOLE [Concomitant]
  13. VITAMIN D [Concomitant]

REACTIONS (1)
  - NEUROPATHY PERIPHERAL [None]
